FAERS Safety Report 22244503 (Version 17)
Quarter: 2024Q2

REPORT INFORMATION
  Report Type: Spontaneous
  Country: DE (occurrence: None)
  Receive Date: 20230424
  Receipt Date: 20240510
  Transmission Date: 20240715
  Serious: Yes (Other)
  Sender: FDA-Public Use
  Company Number: DE-ROCHE-3331109

PATIENT
  Age: 32 Year
  Sex: Female

DRUGS (2)
  1. OCREVUS [Suspect]
     Active Substance: OCRELIZUMAB
     Indication: Relapsing-remitting multiple sclerosis
     Route: 065
     Dates: start: 2021
  2. CORTISONE [Suspect]
     Active Substance: CORTISONE
     Indication: Product used for unknown indication
     Route: 065

REACTIONS (38)
  - Multiple sclerosis [Not Recovered/Not Resolved]
  - Multiple sclerosis relapse [Unknown]
  - Urinary retention [Unknown]
  - Anaphylactic shock [Unknown]
  - COVID-19 [Recovered/Resolved]
  - Gait disturbance [Unknown]
  - Headache [Unknown]
  - Dizziness exertional [Unknown]
  - Cognitive disorder [Unknown]
  - Neuralgia [Unknown]
  - Drug ineffective [Unknown]
  - Vaccination failure [Unknown]
  - Fatigue [Unknown]
  - Hypoaesthesia [Unknown]
  - B-lymphocyte count decreased [Unknown]
  - Immunodeficiency [Unknown]
  - Growing pains [Unknown]
  - Hyporeflexia [Unknown]
  - Dysphagia [Unknown]
  - Panic reaction [Unknown]
  - Alopecia [Unknown]
  - Bone pain [Recovered/Resolved]
  - Paraesthesia [Unknown]
  - Nasopharyngitis [Unknown]
  - Decreased appetite [Unknown]
  - Pyrexia [Unknown]
  - Blood test abnormal [Unknown]
  - Poor venous access [Unknown]
  - Peripheral swelling [Unknown]
  - Extravasation [Unknown]
  - Gamma-glutamyltransferase decreased [Unknown]
  - Pain in extremity [Unknown]
  - Illness [Unknown]
  - Skin laceration [Unknown]
  - Pain [Unknown]
  - Nervousness [Unknown]
  - Depressed mood [Unknown]
  - Hunger [Unknown]

NARRATIVE: CASE EVENT DATE: 20230101
